FAERS Safety Report 4861201-1 (Version None)
Quarter: 2005Q4

REPORT INFORMATION
  Report Type: 
  Country: None (occurrence: None)
  Receive Date: 20051216
  Receipt Date: 20051126
  Transmission Date: 20060501
  Serious: Yes (Other)
  Sender: FDA-Public Use
  Company Number: 2005125367

PATIENT
  Sex: Female
  Weight: 58.9676 kg

DRUGS (8)
  1. LIPITOR [Suspect]
     Indication: HYPERCHOLESTEROLAEMIA
     Dosage: 10 MG (10 MG, 1 IN 1 D), ORAL
     Route: 048
  2. GLUCOSAMINE (GLUCOSAMINE) [Concomitant]
  3. CHONDROITIN (CHONDROITIN SULFATE) [Concomitant]
  4. ZOMETA [Concomitant]
  5. ALL OTHER THERAPEUTIC PRODUCTS (ALL OTHER THERAPEUTIC PRODUCTS) [Concomitant]
  6. CALCIUM WITH VITAMIN D (CALCIUM PHOSPHATE, CALCIUM SODIUM LACTATE, ERG [Concomitant]
  7. COQ-10 ST (TOCOPHEROL, UBIDECARENONE) [Concomitant]
  8. SPIRULINA (SPIRULINA) [Concomitant]

REACTIONS (6)
  - ANAESTHESIA [None]
  - BODY HEIGHT DECREASED [None]
  - MULTIPLE MYELOMA [None]
  - MYALGIA [None]
  - PAIN IN EXTREMITY [None]
  - PARAESTHESIA [None]
